FAERS Safety Report 9581061 (Version 2)
Quarter: 2013Q4

REPORT INFORMATION
  Report Type: Spontaneous
  Country: US (occurrence: US)
  Receive Date: 20131002
  Receipt Date: 20131112
  Transmission Date: 20140711
  Serious: No
  Sender: FDA-Public Use
  Company Number: US-B.I. PHARMACEUTICALS,INC./RIDGEFIELD-2013-BI-29827BP

PATIENT
  Age: 65 Year
  Sex: Male
  Weight: 82 kg

DRUGS (1)
  1. ATROVENT INHALATION SOLUTION [Suspect]
     Indication: RHINORRHOEA
     Dosage: 136 MCG
     Route: 055
     Dates: start: 2011

REACTIONS (3)
  - Dyspnoea [Not Recovered/Not Resolved]
  - Off label use [Not Recovered/Not Resolved]
  - Product quality issue [Not Recovered/Not Resolved]
